FAERS Safety Report 5006449-0 (Version None)
Quarter: 2006Q2

REPORT INFORMATION
  Report Type: 
  Country: None (occurrence: None)
  Receive Date: 20060516
  Receipt Date: 20060505
  Transmission Date: 20061013
  Serious: Yes (Hospitalization)
  Sender: FDA-Public Use
  Company Number: 2006-142460-NL

PATIENT
  Age: 41 Year
  Sex: Male

DRUGS (8)
  1. MIRTAZAPINE [Suspect]
     Dosage: 30 MG/45 MG ORAL
     Route: 048
     Dates: start: 20050901
  2. MIRTAZAPINE [Suspect]
     Dosage: 30 MG/45 MG ORAL
     Route: 048
     Dates: start: 20051119
  3. VENLAFAXINE HCL [Suspect]
     Dosage: 75 MG/150 MG/75 MG ORAL
     Route: 048
     Dates: start: 20051219, end: 20051220
  4. VENLAFAXINE HCL [Suspect]
     Dosage: 75 MG/150 MG/75 MG ORAL
     Route: 048
     Dates: start: 20051221, end: 20051221
  5. VENLAFAXINE HCL [Suspect]
     Dosage: 75 MG/150 MG/75 MG ORAL
     Route: 048
     Dates: start: 20051213
  6. METHADONE HCL [Suspect]
     Indication: ANALGESIC THERAPY
     Dosage: 30 MG ORAL
     Route: 048
     Dates: start: 20050401
  7. METHADONE HCL [Suspect]
     Indication: MUSCULOSKELETAL PAIN
     Dosage: 30 MG ORAL
     Route: 048
     Dates: start: 20050401
  8. DIAZEPAM [Concomitant]

REACTIONS (3)
  - DRY MOUTH [None]
  - HEADACHE [None]
  - SEROTONIN SYNDROME [None]
